FAERS Safety Report 20147841 (Version 1)
Quarter: 2021Q4

REPORT INFORMATION
  Report Type: Spontaneous
  Country: US (occurrence: US)
  Receive Date: 20211203
  Receipt Date: 20211203
  Transmission Date: 20220303
  Serious: Yes (Other)
  Sender: FDA-Public Use
  Company Number: US-NOVARTISPH-NVSC2021US274593

PATIENT
  Sex: Female

DRUGS (2)
  1. RANITIDINE [Suspect]
     Active Substance: RANITIDINE
     Indication: Pancreatitis
     Dosage: 300 MG, QD
     Route: 065
     Dates: end: 202002
  2. RANITIDINE [Suspect]
     Active Substance: RANITIDINE
     Indication: Pancreatitis
     Dosage: 300 MG, QD
     Route: 065
     Dates: end: 202002

REACTIONS (3)
  - Breast cancer [Recovering/Resolving]
  - Skin cancer [Unknown]
  - Product use in unapproved indication [Unknown]
